FAERS Safety Report 18338181 (Version 2)
Quarter: 2020Q4

REPORT INFORMATION
  Report Type: Spontaneous
  Country: US (occurrence: US)
  Receive Date: 20201002
  Receipt Date: 20201026
  Transmission Date: 20210113
  Serious: Yes (Other)
  Sender: FDA-Public Use
  Company Number: US-GILEAD-2020-0496948

PATIENT
  Age: 77 Year
  Sex: Male

DRUGS (17)
  1. LIDOCAINE. [Concomitant]
     Active Substance: LIDOCAINE
  2. METOPROLOL SUCCINATE. [Concomitant]
     Active Substance: METOPROLOL SUCCINATE
  3. NEXIUM HP [Concomitant]
     Active Substance: AMOXICILLIN\CLARITHROMYCIN\ESOMEPRAZOLE
  4. VITAMIN D [VITAMIN D NOS] [Concomitant]
     Active Substance: VITAMIN D NOS
  5. MULTIVIT [VITAMINS NOS] [Concomitant]
  6. XARELTO [Concomitant]
     Active Substance: RIVAROXABAN
  7. FLUTICASONE PROPIONATE. [Concomitant]
     Active Substance: FLUTICASONE PROPIONATE
  8. ZOFRAN [Concomitant]
     Active Substance: ONDANSETRON HYDROCHLORIDE
  9. FISH OIL [Concomitant]
     Active Substance: FISH OIL
  10. CHLORHEXIDINE GLUCONATE. [Concomitant]
     Active Substance: CHLORHEXIDINE GLUCONATE
  11. EPCLUSA [Suspect]
     Active Substance: SOFOSBUVIR\VELPATASVIR
     Indication: CHRONIC HEPATITIS C
     Dosage: 1 DOSAGE FORM, QD
     Route: 048
  12. MOMETASONE FUROATE. [Concomitant]
     Active Substance: MOMETASONE FUROATE
  13. FENTANYL CITRATE. [Concomitant]
     Active Substance: FENTANYL CITRATE
  14. VITAMIN C [Concomitant]
     Active Substance: ASCORBIC ACID
  15. DIAZEPAM. [Concomitant]
     Active Substance: DIAZEPAM
  16. NIACIN. [Concomitant]
     Active Substance: NIACIN
  17. AMLODIPINE BESILATE [Concomitant]
     Active Substance: AMLODIPINE BESYLATE

REACTIONS (2)
  - Flatulence [Not Recovered/Not Resolved]
  - Prostate infection [Unknown]
